FAERS Safety Report 10425187 (Version 3)
Quarter: 2015Q1

REPORT INFORMATION
  Report Type: Spontaneous
  Country: US (occurrence: None)
  Receive Date: 20140722
  Receipt Date: 20150120
  Transmission Date: 20150720
  Serious: No
  Sender: FDA-Public Use
  Company Number: AEGR000473

PATIENT
  Age: 59 Year
  Sex: Male
  Weight: 103.9 kg

DRUGS (11)
  1. IMDUR (ISOSORBIDE MONONITRATE) [Concomitant]
  2. ATORVASTATIN (ATORVASTATIN) [Concomitant]
     Active Substance: ATORVASTATIN
  3. JUXTAPID [Suspect]
     Active Substance: LOMITAPIDE MESYLATE
     Indication: TYPE IIA HYPERLIPIDAEMIA
     Route: 048
     Dates: start: 20140430, end: 20140923
  4. CHLORPHENIRAMINE (CHLORPHENIRAMINE) [Concomitant]
     Active Substance: CHLORPHENIRAMINE
  5. ZETIA [Concomitant]
     Active Substance: EZETIMIBE
  6. ASPIRIN (ACETYLSALICYLIC ACID) [Concomitant]
     Active Substance: ASPIRIN
  7. CO Q 10 (UBIDECARENONE) [Concomitant]
  8. OMEGA (OMEPRAZOLE SODIUM) [Concomitant]
  9. VITAMIN E [Concomitant]
     Active Substance: .ALPHA.-TOCOPHEROL
  10. CARVEDILOL (CARVEDILOL) [Concomitant]
     Active Substance: CARVEDILOL
  11. LOSARTAN (LOSARTAN POTASSIUM) [Concomitant]

REACTIONS (4)
  - Flatulence [None]
  - Fatigue [None]
  - Weight decreased [None]
  - Abdominal distension [None]

NARRATIVE: CASE EVENT DATE: 201404
